FAERS Safety Report 18339005 (Version 1)
Quarter: 2020Q4

REPORT INFORMATION
  Report Type: Spontaneous
  Country: IT (occurrence: IT)
  Receive Date: 20201002
  Receipt Date: 20201002
  Transmission Date: 20210113
  Serious: Yes (Other)
  Sender: FDA-Public Use
  Company Number: IT-TAKEDA-2020TEU009385

PATIENT
  Age: 44 Year
  Sex: Female

DRUGS (3)
  1. COLCHICINE. [Suspect]
     Active Substance: COLCHICINE
     Dosage: 1.5 MILLIGRAM, QD
     Route: 065
  2. CANAKINUMAB. [Concomitant]
     Active Substance: CANAKINUMAB
     Indication: FAMILIAL MEDITERRANEAN FEVER
     Dosage: 150 MILLIGRAM, Q4HR
  3. COLCHICINE. [Suspect]
     Active Substance: COLCHICINE
     Indication: FAMILIAL MEDITERRANEAN FEVER
     Dosage: 2.5 MILLIGRAM, QD
     Route: 065

REACTIONS (1)
  - Non-alcoholic steatohepatitis [Recovering/Resolving]
